FAERS Safety Report 24727722 (Version 1)
Quarter: 2024Q4

REPORT INFORMATION
  Report Type: Spontaneous
  Country: US (occurrence: None)
  Receive Date: 20241212
  Receipt Date: 20241212
  Transmission Date: 20250114
  Serious: Yes (Life-Threatening)
  Sender: Public
  Company Number: None

PATIENT
  Age: 77 Year
  Sex: Male
  Weight: 82 kg

DRUGS (1)
  1. DILTIAZEM HYDROCHLORIDE [Suspect]
     Active Substance: DILTIAZEM HYDROCHLORIDE
     Indication: Tachycardia
     Route: 042
     Dates: start: 20240208, end: 20240208

REACTIONS (5)
  - Hypotension [None]
  - Rash [None]
  - Urticaria [None]
  - Unresponsive to stimuli [None]
  - Pulse absent [None]

NARRATIVE: CASE EVENT DATE: 20240208
